FAERS Safety Report 5355939-X (Version None)
Quarter: 2007Q2

REPORT INFORMATION
  Report Type: 
  Country: None (occurrence: None)
  Receive Date: 20070530
  Receipt Date: 20070302
  Transmission Date: 20071010
  Serious: Yes (Other)
  Sender: FDA-Public Use
  Company Number: US200702004821

PATIENT
  Age: 47 Year
  Sex: Male

DRUGS (2)
  1. ZYPREXA [Suspect]
     Indication: SCHIZOPHRENIA
     Dosage: SEE IMAGE
     Route: 048
  2. ZYPREXA [Suspect]
     Indication: SCHIZOPHRENIA
     Dosage: SEE IMAGE
     Route: 048
     Dates: start: 19980101

REACTIONS (6)
  - CHEST PAIN [None]
  - DISTURBANCE IN ATTENTION [None]
  - FOOD CRAVING [None]
  - INCREASED APPETITE [None]
  - INSOMNIA [None]
  - THINKING ABNORMAL [None]
